FAERS Safety Report 7258585-6 (Version None)
Quarter: 2011Q1

REPORT INFORMATION
  Report Type: 
  Country: None (occurrence: None)
  Receive Date: 20110129
  Receipt Date: 20100502
  Transmission Date: 20110831
  Serious: No
  Sender: FDA-Public Use
  Company Number: US-ABBOTT-08P-163-0477604-00

PATIENT
  Sex: Male
  Weight: 77.18 kg

DRUGS (9)
  1. REMERON [Concomitant]
     Indication: DEPRESSION
     Route: 048
  2. VALIUM [Concomitant]
     Indication: ANXIETY
     Route: 048
  3. HUMIRA [Suspect]
     Indication: CROHN'S DISEASE
     Route: 050
     Dates: start: 20080401
  4. CYMBALTA [Concomitant]
     Indication: DEPRESSION
     Route: 048
  5. ACYCLOVIR [Concomitant]
     Indication: INFECTION
     Route: 048
     Dates: start: 20080905
  6. HUMIRA [Suspect]
     Indication: RHEUMATOID ARTHRITIS
  7. HUMIRA [Suspect]
     Indication: COLITIS ULCERATIVE
  8. LIALDA [Concomitant]
     Indication: CROHN'S DISEASE
     Route: 048
  9. PROSCAR [Concomitant]
     Indication: PROSTATIC DISORDER
     Route: 048

REACTIONS (4)
  - DRUG INEFFECTIVE [None]
  - ANAL FISTULA [None]
  - HAEMORRHAGE [None]
  - PAIN [None]
